FAERS Safety Report 5376661-X (Version None)
Quarter: 2007Q2

REPORT INFORMATION
  Report Type: 
  Country: None (occurrence: None)
  Receive Date: 20070629
  Receipt Date: 20070614
  Transmission Date: 20071010
  Serious: Yes (Death, Hospitalization, Other)
  Sender: FDA-Public Use
  Company Number: 2007RR-07688

PATIENT
  Age: 31 Year
  Sex: Female

DRUGS (1)
  1. ACETAMINOPHEN [Suspect]

REACTIONS (7)
  - ACUTE HEPATIC FAILURE [None]
  - HAEMODIALYSIS [None]
  - HEPATIC ENCEPHALOPATHY [None]
  - LIVER TRANSPLANT [None]
  - OVERDOSE [None]
  - PROTHROMBIN TIME PROLONGED [None]
  - RENAL FAILURE [None]
